FAERS Safety Report 20375510 (Version 1)
Quarter: 2022Q1

REPORT INFORMATION
  Report Type: Spontaneous
  Country: US (occurrence: US)
  Receive Date: 20220125
  Receipt Date: 20220125
  Transmission Date: 20220423
  Serious: No
  Sender: FDA-Public Use
  Company Number: US-PFIZER INC-202101478751

PATIENT
  Age: 73 Year
  Sex: Female
  Weight: 81.633 kg

DRUGS (4)
  1. IBRANCE [Suspect]
     Active Substance: PALBOCICLIB
     Dosage: UNK, CYCLIC (TOOK 21 PILLS OF IBRANCE IN OCTOBER)
  2. IBRANCE [Suspect]
     Active Substance: PALBOCICLIB
     Dosage: 125 MG, CYCLIC
     Dates: start: 20211028
  3. DULOXETINE [Suspect]
     Active Substance: DULOXETINE
     Dosage: UNK
  4. METRONIDAZOLE [Suspect]
     Active Substance: METRONIDAZOLE
     Dosage: UNK

REACTIONS (6)
  - Neoplasm recurrence [Unknown]
  - Somnolence [Unknown]
  - Asthenia [Unknown]
  - Nausea [Unknown]
  - Illness [Unknown]
  - Decreased appetite [Unknown]
